FAERS Safety Report 12949640 (Version 2)
Quarter: 2016Q4

REPORT INFORMATION
  Report Type: Report from Study
  Country: IE (occurrence: IE)
  Receive Date: 20161117
  Receipt Date: 20161226
  Transmission Date: 20170207
  Serious: Yes (Disabling)
  Sender: FDA-Public Use
  Company Number: PHFR2016IE009019

PATIENT
  Age: 64 Year
  Sex: Female

DRUGS (20)
  1. TORVAN [Concomitant]
     Indication: HYPERCHOLESTEROLAEMIA
     Dosage: 40 MG, UNK
     Route: 048
     Dates: start: 20150626
  2. ZITHROMAX [Concomitant]
     Active Substance: AZITHROMYCIN DIHYDRATE
     Indication: PRODUCT USED FOR UNKNOWN INDICATION
     Dosage: 250 MG, UNK
     Route: 065
     Dates: start: 20151221, end: 20151231
  3. CLARITHROMYCIN. [Concomitant]
     Active Substance: CLARITHROMYCIN
     Indication: INFECTION
     Dosage: 500 MG, BID
     Route: 048
     Dates: start: 20150326, end: 20150402
  4. KEFLEX [Concomitant]
     Active Substance: CEPHALEXIN
     Indication: INFECTION
     Dosage: 05 MG, UNK
     Route: 065
     Dates: start: 20160610, end: 20160615
  5. CIPROFLOXACIN. [Concomitant]
     Active Substance: CIPROFLOXACIN
     Indication: PRODUCT USED FOR UNKNOWN INDICATION
     Dosage: 500 MG, UNK
     Route: 048
     Dates: start: 20150722
  6. MOVICOL [Concomitant]
     Active Substance: POLYETHYLENE GLYCOL 3350\POTASSIUM CHLORIDE\SODIUM BICARBONATE\SODIUM CHLORIDE
     Indication: PRODUCT USED FOR UNKNOWN INDICATION
     Dosage: 13.8 G, QD
     Route: 048
     Dates: start: 20151123
  7. EXPUTEX [Concomitant]
     Dosage: UNK
     Route: 048
     Dates: start: 20151221
  8. SALAMOL [Concomitant]
     Active Substance: ALBUTEROL
     Indication: COUGH
     Dosage: 100 UG, UNK
     Route: 055
     Dates: start: 20150422
  9. PARACITAMOL [Concomitant]
     Indication: PRODUCT USED FOR UNKNOWN INDICATION
     Dosage: 500 MG, UNK
     Route: 065
     Dates: start: 20150722
  10. TRIMETHOPRIM. [Concomitant]
     Active Substance: TRIMETHOPRIM
     Indication: URINARY TRACT INFECTION
     Dosage: 50 MG, UNK
     Route: 048
     Dates: start: 20150427, end: 20160510
  11. EXPUTEX [Concomitant]
     Indication: COUGH
     Dosage: UNK UNK, QD
     Route: 048
     Dates: start: 20150326, end: 20150401
  12. LEXAPRO [Concomitant]
     Active Substance: ESCITALOPRAM OXALATE
     Indication: DEPRESSION
     Dosage: 20 MG, UNK
     Route: 065
     Dates: start: 20150510
  13. TRIMETHOPRIM. [Concomitant]
     Active Substance: TRIMETHOPRIM
     Dosage: 200 MG, UNK
     Route: 048
     Dates: start: 20150715, end: 20150720
  14. ZOTON [Concomitant]
     Active Substance: LANSOPRAZOLE
     Indication: GASTROOESOPHAGEAL REFLUX DISEASE
     Dosage: 30 MG, UNK
     Route: 048
     Dates: start: 20160610
  15. ZITHROMAX [Concomitant]
     Active Substance: AZITHROMYCIN DIHYDRATE
     Dosage: 250 MG, UNK
     Route: 048
     Dates: start: 20160607, end: 20160612
  16. ULTIBRO BREEZHALER [Suspect]
     Active Substance: GLYCOPYRRONIUM\INDACATEROL
     Indication: CHRONIC OBSTRUCTIVE PULMONARY DISEASE
     Dosage: UNK
     Route: 055
     Dates: start: 20150326
  17. DELTACORTRIL [Concomitant]
     Active Substance: PREDNISOLONE
     Dosage: UNK
     Route: 048
     Dates: start: 20160607, end: 20160612
  18. VALOID ORAL [Concomitant]
     Indication: NAUSEA
     Dosage: 50 MG, UNK
     Route: 048
     Dates: start: 20150427, end: 20150517
  19. DIFLUCAN [Concomitant]
     Active Substance: FLUCONAZOLE
     Indication: FUNGAL INFECTION
     Dosage: 150 MG, UNK
     Route: 065
     Dates: start: 20150715, end: 20150716
  20. DELTACORTRIL [Concomitant]
     Active Substance: PREDNISOLONE
     Indication: INFECTION
     Dosage: UNK
     Route: 048
     Dates: start: 20150326, end: 20150401

REACTIONS (5)
  - Back pain [Unknown]
  - Lower respiratory tract infection [Unknown]
  - Urinary tract disorder [Unknown]
  - Abdominal pain [Unknown]
  - Constipation [Unknown]

NARRATIVE: CASE EVENT DATE: 20151221
